FAERS Safety Report 12977466 (Version 1)
Quarter: 2016Q4

REPORT INFORMATION
  Report Type: Spontaneous
  Country: FR (occurrence: FR)
  Receive Date: 20161128
  Receipt Date: 20161128
  Transmission Date: 20170207
  Serious: Yes (Other)
  Sender: FDA-Public Use
  Company Number: FR-CLINIGEN GROUP PLC/ CLINIGEN HEALTHCARE LTD-E2B_00000792

PATIENT
  Sex: Female

DRUGS (1)
  1. ETHYOL [Suspect]
     Active Substance: AMIFOSTINE
     Indication: NEOPLASM MALIGNANT
     Dosage: UNK
     Route: 065

REACTIONS (1)
  - Colitis ulcerative [Recovering/Resolving]
